FAERS Safety Report 5291448-4 (Version None)
Quarter: 2007Q2

REPORT INFORMATION
  Report Type: 
  Country: None (occurrence: None)
  Receive Date: 20070402
  Receipt Date: 20070323
  Transmission Date: 20071010
  Serious: Yes (Hospitalization)
  Sender: FDA-Public Use
  Company Number: TCI2007A01522

PATIENT
  Age: 52 Year
  Sex: Male

DRUGS (6)
  1. ACTOS [Suspect]
     Indication: DIABETES MELLITUS
     Dosage: 7.5 MG (7.5 MG, 1 D) PER ORAL
     Route: 048
     Dates: start: 20061001, end: 20070316
  2. NATEGLINIDE [Concomitant]
  3. METFORMIN HYDROCHLORIDE [Concomitant]
  4. LUPRAC (TORASEMIDE) [Concomitant]
  5. DIOVAN [Concomitant]
  6. LIPITOR [Concomitant]

REACTIONS (3)
  - CARDIOMEGALY [None]
  - OEDEMA [None]
  - PERICARDIAL EFFUSION [None]
